FAERS Safety Report 7859071-2 (Version None)
Quarter: 2011Q3

REPORT INFORMATION
  Report Type: 
  Country: None (occurrence: None)
  Receive Date: 20110923
  Receipt Date: 20100219
  Transmission Date: 20111222
  Serious: No
  Sender: FDA-Public Use
  Company Number: 10-002

PATIENT

DRUGS (17)
  1. ALLERGENIC EXTRACTS [Suspect]
  2. ALLERGENIC EXTRACTS [Suspect]
  3. ALLERGENIC EXTRACTS [Suspect]
  4. ALLERGENIC EXTRACTS [Suspect]
  5. ALLERGENIC EXTRACTS [Suspect]
  6. ALLERGENIC EXTRACTS [Suspect]
  7. ALLERGENIC EXTRACTS [Suspect]
  8. ALLERGENIC EXTRACTS [Suspect]
  9. ALLERGENIC EXTRACTS [Suspect]
  10. ALLERGENIC EXTRACTS [Suspect]
  11. ALLERGENIC EXTRACTS [Suspect]
  12. ALLERGENIC EXTRACTS [Suspect]
  13. ALLERGENIC EXTRACTS [Suspect]
  14. ALLERGENIC EXTRACTS [Suspect]
  15. ALLERGENIC EXTRACTS [Suspect]
     Dates: start: 20100202, end: 20100223
  16. ALLERGENIC EXTRACTS [Suspect]
  17. ALLERGENIC EXTRACTS [Suspect]

REACTIONS (1)
  - UNEVALUABLE EVENT [None]
